FAERS Safety Report 8985585 (Version 1)
Quarter: 2012Q4

REPORT INFORMATION
  Report Type: Report from Study
  Country: CA (occurrence: CA)
  Receive Date: 20121226
  Receipt Date: 20121226
  Transmission Date: 20130627
  Serious: Yes (Other)
  Sender: FDA-Public Use
  Company Number: CA-JNJFOC-20121210085

PATIENT
  Age: 60 Year
  Sex: Female
  Weight: 81.8 kg

DRUGS (8)
  1. REMICADE [Suspect]
     Indication: PSORIASIS
     Route: 042
     Dates: start: 20121217
  2. REMICADE [Suspect]
     Indication: PSORIASIS
     Route: 042
     Dates: start: 200910
  3. REMICADE [Suspect]
     Indication: PSORIASIS
     Route: 042
     Dates: start: 201210
  4. VENLAFAXINE [Concomitant]
     Route: 065
  5. RABEPRAZOLE [Concomitant]
     Route: 065
  6. AMITRIPTYLINE [Concomitant]
     Route: 065
  7. VITAMINS (NOS) [Concomitant]
     Dosage: daily puffer when required
     Route: 065
  8. ALL OTHER THERAPEUTIC PRODUCTS [Concomitant]
     Dosage: daily puffer when required
     Route: 065

REACTIONS (3)
  - Ear infection [Recovered/Resolved]
  - Lower respiratory tract infection [Recovered/Resolved]
  - Back pain [Not Recovered/Not Resolved]
